FAERS Safety Report 9691428 (Version 1)
Quarter: 2013Q4

REPORT INFORMATION
  Report Type: Spontaneous
  Country: FR (occurrence: FR)
  Receive Date: 20131115
  Receipt Date: 20131115
  Transmission Date: 20140711
  Serious: Yes (Other)
  Sender: FDA-Public Use
  Company Number: FR-ROCHE-1299770

PATIENT
  Age: 57 Year
  Sex: Male

DRUGS (13)
  1. AVASTIN [Suspect]
     Indication: COLON CANCER
     Dosage: DOSE 25MG/ML
     Route: 042
     Dates: start: 20130325, end: 20130325
  2. AVASTIN [Suspect]
     Route: 065
     Dates: start: 2012
  3. AVASTIN [Suspect]
     Route: 065
     Dates: start: 20130311
  4. OXALIPLATIN [Suspect]
     Indication: COLON CANCER
     Dosage: DOSE:5MG/ML
     Route: 042
     Dates: start: 20130325, end: 20130325
  5. OXALIPLATIN [Suspect]
     Route: 065
     Dates: start: 20130311
  6. OXALIPLATIN [Suspect]
     Route: 065
     Dates: start: 2012
  7. OXALIPLATIN [Suspect]
     Route: 065
     Dates: start: 20130403
  8. CALCIUM LEVOFOLINATE [Suspect]
     Indication: COLON CANCER
     Route: 042
     Dates: start: 20130325, end: 20130325
  9. CALCIUM LEVOFOLINATE [Suspect]
     Route: 065
     Dates: start: 2012
  10. CALCIUM LEVOFOLINATE [Suspect]
     Route: 065
     Dates: start: 20130311
  11. CALCIUM LEVOFOLINATE [Suspect]
     Route: 065
     Dates: start: 20130403
  12. 5-FU [Suspect]
     Indication: COLON CANCER
     Route: 065
     Dates: start: 20130311
  13. 5-FU [Suspect]
     Route: 065
     Dates: start: 20130403

REACTIONS (4)
  - Hypotension [Recovered/Resolved]
  - Dyspnoea [Recovered/Resolved]
  - Malaise [Recovered/Resolved]
  - Rash [Recovered/Resolved]
